APPROVED DRUG PRODUCT: ETHOSUXIMIDE
Active Ingredient: ETHOSUXIMIDE
Strength: 250MG
Dosage Form/Route: CAPSULE;ORAL
Application: A200892 | Product #001 | TE Code: AB
Applicant: HERITAGE PHARMACEUTICALS INC
Approved: Sep 25, 2012 | RLD: No | RS: No | Type: RX